FAERS Safety Report 6033525-6 (Version None)
Quarter: 2009Q1

REPORT INFORMATION
  Report Type: 
  Country: None (occurrence: None)
  Receive Date: 20090109
  Receipt Date: 20081224
  Transmission Date: 20090719
  Serious: No
  Sender: FDA-Public Use
  Company Number: US-B.I. PHARMACEUTICALS,INC./RIDGEFIELD-2008-BP-17604BP

PATIENT
  Sex: Male

DRUGS (9)
  1. SPIRIVA [Suspect]
     Indication: CHRONIC OBSTRUCTIVE PULMONARY DISEASE
     Route: 055
     Dates: end: 20050101
  2. SPIRIVA [Suspect]
     Indication: ASTHMA
  3. SPIRIVA [Suspect]
     Indication: BRONCHITIS CHRONIC
  4. ADVAIR DISKUS 250/50 [Concomitant]
     Indication: DYSPNOEA
  5. ALBUTEROL SULFATE [Concomitant]
     Indication: DYSPNOEA
  6. ANDROGEL [Concomitant]
  7. HYDROCODONE [Concomitant]
  8. FOSAMAX [Concomitant]
  9. FLONASE [Concomitant]

REACTIONS (2)
  - BLADDER DISORDER [None]
  - DYSURIA [None]
